FAERS Safety Report 11631790 (Version 1)
Quarter: 2015Q4

REPORT INFORMATION
  Report Type: Spontaneous
  Country: US (occurrence: US)
  Receive Date: 20151015
  Receipt Date: 20151015
  Transmission Date: 20160304
  Serious: No
  Sender: FDA-Public Use
  Company Number: US-GLENMARK PHARMACEUTICALS INC, USA.-2015GMK016246

PATIENT

DRUGS (3)
  1. BABY ASPIRIN [Concomitant]
     Active Substance: ASPIRIN
     Indication: PRODUCT USED FOR UNKNOWN INDICATION
     Dosage: UNK
  2. GABAPENTIN. [Suspect]
     Active Substance: GABAPENTIN
     Dosage: UNK
     Route: 048
     Dates: start: 201410
  3. GABAPENTIN. [Suspect]
     Active Substance: GABAPENTIN
     Indication: INFLAMMATORY PAIN
     Dosage: 800 MG, TID
     Route: 048
     Dates: start: 20150413

REACTIONS (3)
  - Salivary hypersecretion [Recovering/Resolving]
  - Drug ineffective for unapproved indication [Unknown]
  - Amnesia [Not Recovered/Not Resolved]
